FAERS Safety Report 6785833-9 (Version None)
Quarter: 2010Q2

REPORT INFORMATION
  Report Type: 
  Country: None (occurrence: None)
  Receive Date: 20100623
  Receipt Date: 20100618
  Transmission Date: 20101027
  Serious: Yes (Hospitalization)
  Sender: FDA-Public Use
  Company Number: US-PFIZER INC-2008071324

PATIENT
  Sex: Female
  Weight: 97.959 kg

DRUGS (9)
  1. SUNITINIB MALATE [Suspect]
     Indication: BREAST CANCER
     Dosage: 25 MG, 1X/DAY
     Route: 048
     Dates: start: 20080710, end: 20080808
  2. SUNITINIB MALATE [Suspect]
     Dosage: 37.5 MG, 1X/DAY
     Route: 048
     Dates: start: 20080809, end: 20080825
  3. PACLITAXEL [Suspect]
     Indication: BREAST CANCER
     Dosage: 160 MG, EVERY 3 WEEKS
     Route: 017
     Dates: start: 20080710, end: 20080815
  4. ZOLOFT [Concomitant]
     Route: 048
     Dates: start: 20000927
  5. SYNTHROID [Concomitant]
     Route: 048
     Dates: start: 20000927
  6. CELEBREX [Concomitant]
     Route: 048
     Dates: start: 20080809
  7. LORTAB [Concomitant]
     Route: 048
     Dates: start: 20080610
  8. ZANTAC [Concomitant]
     Route: 048
     Dates: start: 20080710
  9. XANAX [Concomitant]
     Route: 048
     Dates: start: 20080529

REACTIONS (1)
  - OESOPHAGEAL PERFORATION [None]
